FAERS Safety Report 9170735 (Version 1)
Quarter: 2013Q1

REPORT INFORMATION
  Report Type: Spontaneous
  Country: US (occurrence: None)
  Receive Date: 20130312
  Receipt Date: 20130312
  Transmission Date: 20140127
  Serious: No
  Sender: FDA-Public Use
  Company Number: FK201300674

PATIENT
  Age: 1 Year
  Sex: Female

DRUGS (1)
  1. LIDOCAINE [Suspect]
     Indication: LOCAL ANAESTHESIA

REACTIONS (7)
  - Pallor [None]
  - Jaundice [None]
  - Irritability [None]
  - Oxygen saturation decreased [None]
  - Haemolysis [None]
  - Cyanosis [None]
  - Methaemoglobinaemia [None]
